FAERS Safety Report 14573228 (Version 4)
Quarter: 2018Q2

REPORT INFORMATION
  Report Type: Report from Study
  Country: US (occurrence: US)
  Receive Date: 20180226
  Receipt Date: 20180406
  Transmission Date: 20180711
  Serious: Yes (Hospitalization, Other)
  Sender: FDA-Public Use
  Company Number: US-PFIZER INC-2018079583

PATIENT
  Age: 55 Year
  Sex: Male

DRUGS (2)
  1. SUTENT [Suspect]
     Active Substance: SUNITINIB MALATE
     Indication: RENAL CELL CARCINOMA
     Dosage: 50 MG, CYCLIC (ONCE DAILY FOR 2 WEEKS IN A ROW FOLLOWED BY 1 WEEK OFF)
     Route: 048
     Dates: start: 20180116, end: 20180306
  2. SUTENT [Suspect]
     Active Substance: SUNITINIB MALATE
     Dosage: 50 MG, CYCLIC (ONCE DAILY FOR 14 DAYS IN A ROW, FOLLOWED BY 7 DAYS OFF)
     Route: 048
     Dates: start: 20180116, end: 201803

REACTIONS (16)
  - Platelet count decreased [Not Recovered/Not Resolved]
  - Dry skin [Not Recovered/Not Resolved]
  - Red blood cell count decreased [Not Recovered/Not Resolved]
  - Fatigue [Not Recovered/Not Resolved]
  - Asthenia [Not Recovered/Not Resolved]
  - Decreased appetite [Not Recovered/Not Resolved]
  - Constipation [Unknown]
  - White blood cell count decreased [Not Recovered/Not Resolved]
  - Large intestinal haemorrhage [Unknown]
  - Hypertension [Not Recovered/Not Resolved]
  - Haemoglobin decreased [Unknown]
  - Abdominal pain [Not Recovered/Not Resolved]
  - Obstruction gastric [Unknown]
  - Condition aggravated [Unknown]
  - Dysgeusia [Unknown]
  - Oral disorder [Unknown]

NARRATIVE: CASE EVENT DATE: 20180306
